FAERS Safety Report 9432290 (Version 1)
Quarter: 2013Q3

REPORT INFORMATION
  Report Type: Spontaneous
  Country: US (occurrence: None)
  Receive Date: 20130729
  Receipt Date: 20130729
  Transmission Date: 20140515
  Serious: Yes (Hospitalization)
  Sender: FDA-Public Use
  Company Number: UTC-035617

PATIENT
  Age: 34 Year
  Sex: Female

DRUGS (2)
  1. REMODULIN (INJECTION FOR INFUSION) (TREPROSTINIL SODIUM) [Suspect]
     Indication: PULMONARY ARTERIAL HYPERTENSION
     Route: 041
  2. SILDENAFIL [Concomitant]

REACTIONS (8)
  - Cardiac operation [None]
  - Lung transplant [None]
  - Right ventricular failure [None]
  - Cardiovascular deconditioning [None]
  - Renal failure acute [None]
  - Catheter site haemorrhage [None]
  - Catheter site haematoma [None]
  - Brachial plexopathy [None]
